FAERS Safety Report 23860976 (Version 2)
Quarter: 2024Q3

REPORT INFORMATION
  Report Type: Spontaneous
  Country: AR (occurrence: AR)
  Receive Date: 20240516
  Receipt Date: 20240909
  Transmission Date: 20241017
  Serious: Yes (Hospitalization)
  Sender: PADAGIS
  Company Number: AR-PADAGIS-2024PAD00825

PATIENT

DRUGS (5)
  1. IBUPROFEN [Suspect]
     Active Substance: IBUPROFEN
     Indication: Headache
     Dosage: UNK
     Route: 048
  2. IBUPROFEN [Suspect]
     Active Substance: IBUPROFEN
     Dosage: 600 MG (SOFT CAPSULE)
     Route: 048
  3. IBUPROFEN [Suspect]
     Active Substance: IBUPROFEN
     Dosage: 400 MG (SOFT CAPSULE)
     Route: 048
  4. FENOFIBRATE [Concomitant]
     Active Substance: FENOFIBRATE
     Indication: Product used for unknown indication
     Dosage: UNK
     Route: 065
  5. ACETAMINOPHEN [Concomitant]
     Active Substance: ACETAMINOPHEN
     Indication: Headache
     Dosage: 1 G
     Route: 065

REACTIONS (4)
  - Orbital compartment syndrome [Recovering/Resolving]
  - Optic ischaemic neuropathy [Recovering/Resolving]
  - Angioedema [Recovering/Resolving]
  - Product use in unapproved indication [Unknown]
